FAERS Safety Report 22303371 (Version 1)
Quarter: 2023Q2

REPORT INFORMATION
  Report Type: Spontaneous
  Country: KR (occurrence: KR)
  Receive Date: 20230510
  Receipt Date: 20230510
  Transmission Date: 20230721
  Serious: Yes (Death, Other)
  Sender: FDA-Public Use
  Company Number: KR-PFIZER INC-PV202300079331

PATIENT
  Age: 51 Year
  Sex: Male

DRUGS (1)
  1. AXITINIB [Suspect]
     Active Substance: AXITINIB
     Indication: Renal cell carcinoma
     Dosage: UNK

REACTIONS (5)
  - Pneumonia aspiration [Fatal]
  - Acute kidney injury [Fatal]
  - Neoplasm progression [Fatal]
  - Posterior reversible encephalopathy syndrome [Unknown]
  - Condition aggravated [Unknown]
